FAERS Safety Report 25832228 (Version 1)
Quarter: 2025Q3

REPORT INFORMATION
  Report Type: Spontaneous
  Country: US (occurrence: None)
  Receive Date: 20250922
  Receipt Date: 20250922
  Transmission Date: 20251020
  Serious: Yes (Hospitalization)
  Sender: FDA-CTU
  Company Number: None

PATIENT

DRUGS (2)
  1. IVERMECTIN [Suspect]
     Active Substance: IVERMECTIN
     Indication: Neoplasm malignant
  2. ESTROGENS [Concomitant]
     Active Substance: ESTROGENS

REACTIONS (5)
  - Product use in unapproved indication [None]
  - Product advertising issue [None]
  - Intentional overdose [None]
  - Victim of crime [None]
  - Drug monitoring procedure not performed [None]
